FAERS Safety Report 19940890 (Version 2)
Quarter: 2021Q4

REPORT INFORMATION
  Report Type: Spontaneous
  Country: US (occurrence: US)
  Receive Date: 20211012
  Receipt Date: 20211022
  Transmission Date: 20220303
  Serious: Yes (Other)
  Sender: FDA-Public Use
  Company Number: US-ROCHE-2929152

PATIENT

DRUGS (3)
  1. XELODA [Suspect]
     Active Substance: CAPECITABINE
     Indication: Breast cancer metastatic
     Dosage: FOUR TABLETS AFTER MEAL TWICE DAILY 14 DAYS ON AND 14 DAYS OFF ;ONGOING: YES
     Route: 048
  2. HERCEPTIN [Suspect]
     Active Substance: TRASTUZUMAB
     Indication: Breast cancer metastatic
     Dosage: UNKNOWN
     Route: 065
  3. TUKYSA [Concomitant]
     Active Substance: TUCATINIB
     Indication: Breast cancer metastatic

REACTIONS (2)
  - Oesophageal stenosis [Unknown]
  - Dysphagia [Unknown]
